FAERS Safety Report 5134604-8 (Version None)
Quarter: 2006Q4

REPORT INFORMATION
  Report Type: 
  Country: None (occurrence: None)
  Receive Date: 20061025
  Receipt Date: 20061017
  Transmission Date: 20070319
  Serious: Yes (Death, Hospitalization)
  Sender: FDA-Public Use
  Company Number: US-GLAXOSMITHKLINE-A0624125A

PATIENT
  Age: 10 Year
  Sex: Female
  Weight: 48.6 kg

DRUGS (4)
  1. ADVAIR HFA [Suspect]
     Indication: ASTHMA
     Dosage: 1PUFF TWICE PER DAY
     Route: 055
     Dates: start: 20010801, end: 20051104
  2. ALBUTEROL [Concomitant]
  3. SINGULAIR [Concomitant]
  4. PREDNISONE TAB [Concomitant]

REACTIONS (13)
  - ASTHMA [None]
  - CARDIO-RESPIRATORY ARREST [None]
  - CHEST DISCOMFORT [None]
  - COUGH [None]
  - DRUG ADMINISTRATION ERROR [None]
  - DYSPNOEA [None]
  - HYPOXIA [None]
  - LOSS OF CONSCIOUSNESS [None]
  - MUCOSAL DISCOLOURATION [None]
  - RESPIRATORY FAILURE [None]
  - RESPIRATORY TRACT CONGESTION [None]
  - STATUS ASTHMATICUS [None]
  - WHEEZING [None]
